FAERS Safety Report 4361187-2 (Version None)
Quarter: 2004Q2

REPORT INFORMATION
  Report Type: 
  Country: None (occurrence: None)
  Receive Date: 20040510
  Receipt Date: 20030305
  Transmission Date: 20050107
  Serious: Yes (Disabling)
  Sender: FDA-Public Use
  Company Number: TAP2003Q00560

PATIENT
  Age: 33 Year
  Sex: Female
  Weight: 83.9154 kg

DRUGS (3)
  1. LUPRON DEPOT-3 [Suspect]
     Indication: MENORRHAGIA
     Dosage: 11.25 MG, ONCE, INTRAMUSCULAR
     Route: 030
     Dates: start: 20030218, end: 20030218
  2. LUPRON DEPOT-3 [Suspect]
     Indication: PELVIC PAIN
     Dosage: 11.25 MG, ONCE, INTRAMUSCULAR
     Route: 030
     Dates: start: 20030218, end: 20030218
  3. PREMPRO 14/14 [Concomitant]

REACTIONS (4)
  - BONE PAIN [None]
  - MEDICATION ERROR [None]
  - MIGRAINE [None]
  - MYALGIA [None]
